FAERS Safety Report 11455205 (Version 1)
Quarter: 2015Q3

REPORT INFORMATION
  Report Type: Spontaneous
  Country: US (occurrence: US)
  Receive Date: 20150903
  Receipt Date: 20150903
  Transmission Date: 20151125
  Serious: No
  Sender: FDA-Public Use
  Company Number: US-APOTEX-2015AP005022

PATIENT
  Age: 75 Year
  Sex: Male

DRUGS (4)
  1. GABAPENTIN. [Suspect]
     Active Substance: GABAPENTIN
     Indication: PRODUCT USED FOR UNKNOWN INDICATION
  2. CLONAZEPAM TABLETS USP [Suspect]
     Active Substance: CLONAZEPAM
     Indication: PRODUCT USED FOR UNKNOWN INDICATION
     Dosage: UP TO 0.5MG TWICE A DAY
  3. TOPIRAMATE. [Suspect]
     Active Substance: TOPIRAMATE
     Indication: ORTHOSTATIC TREMOR
     Dosage: UP TO 50MG TWICE DAILY
     Route: 065
  4. VALPROIC ACID ORAL SOLUTION USP [Suspect]
     Active Substance: VALPROIC ACID

REACTIONS (4)
  - Decreased appetite [Unknown]
  - Sedation [Unknown]
  - Weight decreased [Unknown]
  - Drug ineffective [Unknown]
